FAERS Safety Report 5746550-7 (Version None)
Quarter: 2008Q2

REPORT INFORMATION
  Report Type: 
  Country: None (occurrence: None)
  Receive Date: 20080522
  Receipt Date: 20080304
  Transmission Date: 20081010
  Serious: No
  Sender: FDA-Public Use
  Company Number: US-BRISTOL-MYERS SQUIBB COMPANY-14101539

PATIENT
  Age: 31 Year
  Sex: Female

DRUGS (1)
  1. CYTOXAN [Suspect]
     Dosage: DURATION:1.5YR

REACTIONS (1)
  - PREGNANCY [None]
